FAERS Safety Report 9353350 (Version 4)
Quarter: 2013Q4

REPORT INFORMATION
  Report Type: Report from Study
  Country: CA (occurrence: CA)
  Receive Date: 20130618
  Receipt Date: 20131225
  Transmission Date: 20140711
  Serious: Yes (Other)
  Sender: FDA-Public Use
  Company Number: CA-ROCHE-1237111

PATIENT
  Age: 54 Year
  Sex: Male
  Weight: 88.5 kg

DRUGS (5)
  1. RITUXAN [Suspect]
     Indication: RHEUMATOID ARTHRITIS
     Dosage: MOST RECENT DOSE ON 04/JUN/2013 DAY 1.
     Route: 042
     Dates: start: 20110315
  2. RITUXAN [Suspect]
     Route: 042
  3. RITUXAN [Suspect]
     Route: 042
     Dates: start: 20130619
  4. RAMIPRIL [Concomitant]
  5. TYLENOL [Concomitant]

REACTIONS (7)
  - Pharyngeal haemorrhage [Recovered/Resolved]
  - Rectal haemorrhage [Recovered/Resolved]
  - Infusion related reaction [Recovered/Resolved]
  - Neck pain [Unknown]
  - Headache [Unknown]
  - Rheumatoid arthritis [Unknown]
  - Eye pain [Unknown]
